FAERS Safety Report 7275225-0 (Version None)
Quarter: 2011Q1

REPORT INFORMATION
  Report Type: 
  Country: None (occurrence: None)
  Receive Date: 20110204
  Receipt Date: 20110128
  Transmission Date: 20110831
  Serious: Yes (Other)
  Sender: FDA-Public Use
  Company Number: PHHY2010BR35547

PATIENT
  Sex: Female

DRUGS (1)
  1. ENABLEX [Suspect]
     Dosage: 7.5 MG, UNK
     Route: 048

REACTIONS (3)
  - URINARY TRACT OBSTRUCTION [None]
  - RENAL IMPAIRMENT [None]
  - GALLBLADDER DISORDER [None]
